FAERS Safety Report 15180312 (Version 1)
Quarter: 2018Q3

REPORT INFORMATION
  Report Type: Spontaneous
  Country: US (occurrence: US)
  Receive Date: 20180723
  Receipt Date: 20180723
  Transmission Date: 20181010
  Serious: Yes (Other)
  Sender: FDA-Public Use
  Company Number: US-ACCORD-069693

PATIENT
  Age: 21 Year
  Sex: Male

DRUGS (11)
  1. ARIPIPRAZOLE. [Suspect]
     Active Substance: ARIPIPRAZOLE
     Indication: GENERALISED ANXIETY DISORDER
     Dosage: Q.H.S
  2. TESTOSTERONE. [Concomitant]
     Active Substance: TESTOSTERONE
  3. LAMOTRIGINE. [Concomitant]
     Active Substance: LAMOTRIGINE
  4. LORAZEPAM. [Concomitant]
     Active Substance: LORAZEPAM
  5. BENZATROPINE [Concomitant]
     Active Substance: BENZTROPINE
     Dosage: B.I.D. P.R.N
  6. LITHIUM. [Concomitant]
     Active Substance: LITHIUM
     Dosage: Q.H.S.
  7. LURASIDONE [Concomitant]
     Active Substance: LURASIDONE
     Dosage: 40 MG Q. DINNER
  8. BUPROPION/BUPROPION HYDROCHLORIDE [Concomitant]
     Dosage: 150 MG Q.A.M.
  9. BUSPIRONE [Suspect]
     Active Substance: BUSPIRONE HYDROCHLORIDE
     Indication: MAJOR DEPRESSION
  10. ESCITALOPRAM [Suspect]
     Active Substance: ESCITALOPRAM OXALATE
     Indication: MAJOR DEPRESSION
  11. AMFETAMINE [Concomitant]
     Active Substance: AMPHETAMINE
     Dosage: Q.A.M

REACTIONS (16)
  - Akathisia [Recovered/Resolved]
  - Diarrhoea [Recovered/Resolved]
  - Chills [Recovered/Resolved]
  - Gynaecomastia [Recovered/Resolved]
  - Headache [Recovered/Resolved]
  - Piloerection [Recovered/Resolved]
  - Amnesia [Recovered/Resolved]
  - Disorganised speech [Recovered/Resolved]
  - Pain [Recovered/Resolved]
  - Withdrawal syndrome [Recovered/Resolved]
  - Agitation [Recovered/Resolved]
  - Feeling abnormal [Recovered/Resolved]
  - Restlessness [Recovered/Resolved]
  - Pyrexia [Recovered/Resolved]
  - Bone pain [Recovered/Resolved]
  - Hyperhidrosis [Recovered/Resolved]
